FAERS Safety Report 25612379 (Version 1)
Quarter: 2025Q3

REPORT INFORMATION
  Report Type: Report from Study
  Country: CA (occurrence: CA)
  Receive Date: 20250728
  Receipt Date: 20250728
  Transmission Date: 20251020
  Serious: Yes (Other)
  Sender: ALEXION PHARMACEUTICALS
  Company Number: CA-AstraZeneca-CH-00916116A

PATIENT
  Age: 74 Year
  Sex: Male

DRUGS (7)
  1. BENRALIZUMAB [Suspect]
     Active Substance: BENRALIZUMAB
     Indication: Asthma
  2. BENRALIZUMAB [Suspect]
     Active Substance: BENRALIZUMAB
  3. BREO ELLIPTA [Concomitant]
     Active Substance: FLUTICASONE FUROATE\VILANTEROL TRIFENATATE
     Route: 065
  4. INCRUSE ELLIPTA [Concomitant]
     Active Substance: UMECLIDINIUM BROMIDE
     Route: 065
  5. VENTOLIN [Concomitant]
     Active Substance: ALBUTEROL SULFATE
     Route: 065
  6. METHOTREXATE [Suspect]
     Active Substance: METHOTREXATE
     Route: 065
  7. PREDNISONE [Concomitant]
     Active Substance: PREDNISONE
     Dosage: 5 MILLIGRAM, QD
     Route: 065

REACTIONS (14)
  - Oxygen saturation decreased [Unknown]
  - C-reactive protein increased [Unknown]
  - Asthma [Unknown]
  - Decreased appetite [Unknown]
  - Lethargy [Unknown]
  - Eustachian tube obstruction [Unknown]
  - Chest discomfort [Unknown]
  - Exercise tolerance decreased [Unknown]
  - Vital capacity decreased [Unknown]
  - Respiration abnormal [Unknown]
  - Eosinophilic granulomatosis with polyangiitis [Unknown]
  - Feeding disorder [Unknown]
  - Intestinal ischaemia [Unknown]
  - Pneumonitis [Unknown]

NARRATIVE: CASE EVENT DATE: 20250721
